FAERS Safety Report 23930934 (Version 1)
Quarter: 2024Q2

REPORT INFORMATION
  Report Type: Spontaneous
  Country: ES (occurrence: ES)
  Receive Date: 20240603
  Receipt Date: 20240603
  Transmission Date: 20240716
  Serious: Yes (Other)
  Sender: FDA-Public Use
  Company Number: ES-ADVANZ PHARMA-202405004383

PATIENT
  Age: 55 Year
  Sex: Male

DRUGS (3)
  1. OCALIVA [Suspect]
     Active Substance: OBETICHOLIC ACID
     Indication: Product used for unknown indication
     Dosage: UNK (OCALIVA)
     Dates: start: 202403, end: 20240509
  2. URSODIOL [Suspect]
     Active Substance: URSODIOL
     Indication: Product used for unknown indication
     Dosage: UNK
     Dates: end: 2024
  3. BEZAFIBRATE [Suspect]
     Active Substance: BEZAFIBRATE
     Indication: Product used for unknown indication
     Dosage: UNK
     Dates: end: 2024

REACTIONS (9)
  - Diabetes mellitus [Unknown]
  - Nausea [Unknown]
  - Vomiting [Unknown]
  - Balance disorder [Unknown]
  - Change of bowel habit [Unknown]
  - Weight decreased [Recovering/Resolving]
  - Asthenia [Unknown]
  - Dizziness [Unknown]
  - Therapy cessation [Unknown]

NARRATIVE: CASE EVENT DATE: 20240101
